FAERS Safety Report 4936183-4 (Version None)
Quarter: 2006Q1

REPORT INFORMATION
  Report Type: 
  Country: None (occurrence: None)
  Receive Date: 20060307
  Receipt Date: 20051129
  Transmission Date: 20060701
  Serious: No
  Sender: FDA-Public Use
  Company Number: US-GLAXOSMITHKLINE-A0583835A

PATIENT
  Sex: Male

DRUGS (18)
  1. REQUIP [Suspect]
     Indication: RESTLESS LEGS SYNDROME
     Dosage: 3MG THREE TIMES PER DAY
     Route: 048
  2. NEURONTIN [Concomitant]
  3. CELEBREX [Concomitant]
  4. MORPHINE SULFATE [Concomitant]
  5. PROTONIX [Concomitant]
  6. PAXIL [Concomitant]
  7. FOLIC ACID [Concomitant]
  8. CLARITIN [Concomitant]
  9. CARAFATE [Concomitant]
  10. ATIVAN [Concomitant]
  11. LIPITOR [Concomitant]
  12. B-12 [Concomitant]
  13. B-1 [Concomitant]
  14. FLOVENT [Concomitant]
  15. COMBIVENT [Concomitant]
  16. ALBUTEROL [Concomitant]
  17. LACTOSE [Concomitant]
  18. VALIUM [Concomitant]

REACTIONS (3)
  - CONSTIPATION [None]
  - DIZZINESS [None]
  - NAUSEA [None]
